FAERS Safety Report 4766499-6 (Version None)
Quarter: 2005Q3

REPORT INFORMATION
  Report Type: 
  Country: None (occurrence: None)
  Receive Date: 20050909
  Receipt Date: 20050823
  Transmission Date: 20060218
  Serious: Yes (Other)
  Sender: FDA-Public Use
  Company Number: 27239

PATIENT
  Age: 65 Year
  Sex: Male

DRUGS (2)
  1. TAMBOCOR [Suspect]
     Indication: ATRIAL FIBRILLATION
     Dosage: (150 MG,) ORAL
     Route: 048
     Dates: start: 20050729, end: 20050801
  2. WARAN [Concomitant]

REACTIONS (12)
  - ATRIAL FIBRILLATION [None]
  - BLOOD FOLATE DECREASED [None]
  - BLOOD LACTATE DEHYDROGENASE INCREASED [None]
  - DEEP VEIN THROMBOSIS [None]
  - DEPRESSION [None]
  - DRUG INTOLERANCE [None]
  - HAEMOLYTIC ANAEMIA [None]
  - NO THERAPEUTIC RESPONSE [None]
  - POLYNEUROPATHY [None]
  - TREATMENT NONCOMPLIANCE [None]
  - VITAMIN B12 DECREASED [None]
  - WEIGHT DECREASED [None]
